FAERS Safety Report 17211434 (Version 2)
Quarter: 2020Q3

REPORT INFORMATION
  Report Type: Report from Study
  Country: TH (occurrence: TH)
  Receive Date: 20191229
  Receipt Date: 20200303
  Transmission Date: 20201104
  Serious: Yes (Hospitalization)
  Sender: FDA-Public Use
  Company Number: TH-ALEXION PHARMACEUTICALS INC.-A201915895

PATIENT
  Age: 45 Year
  Sex: Female
  Weight: 47 kg

DRUGS (27)
  1. FOLIC ACID. [Concomitant]
     Active Substance: FOLIC ACID
     Indication: PAROXYSMAL NOCTURNAL HAEMOGLOBINURIA
     Dosage: 5 ?G, QD
     Route: 048
     Dates: start: 20120430
  2. ETHAMBUTOL [Concomitant]
     Active Substance: ETHAMBUTOL HYDROCHLORIDE
     Indication: ABSCESS LIMB
     Dosage: 1000 MG, QD
     Route: 048
     Dates: start: 20180809
  3. PREDNISOLONE. [Concomitant]
     Active Substance: PREDNISOLONE
     Indication: AUTOIMMUNE HAEMOLYTIC ANAEMIA
     Dosage: 25 MG, QD
     Route: 048
     Dates: start: 20190430
  4. CPM [Concomitant]
     Active Substance: CHLORPHENIRAMINE MALEATE
     Indication: PROPHYLAXIS
     Dosage: 10 MG, BID
     Route: 042
     Dates: start: 20191012, end: 20191012
  5. LORAZEPAM. [Concomitant]
     Active Substance: LORAZEPAM
     Indication: ADJUSTMENT DISORDER
     Dosage: 2 MG, QD
     Route: 048
     Dates: start: 20190427
  6. DIPHENHYDRAMINE. [Concomitant]
     Active Substance: DIPHENHYDRAMINE
     Indication: PREMEDICATION
     Dosage: 50 MG, SINGLE
     Route: 048
     Dates: start: 20191015, end: 20191015
  7. THYROXINE [Concomitant]
     Active Substance: LEVOTHYROXINE
     Indication: HYPOTHYROIDISM
     Dosage: 150 ?G, 6 TIMES PER WEEK
     Route: 048
     Dates: start: 20171214
  8. AZITHROMYCIN ANHYDROUS. [Concomitant]
     Active Substance: AZITHROMYCIN ANHYDROUS
     Indication: ABSCESS LIMB
     Dosage: 500 MG, QD
     Route: 048
     Dates: start: 20180910
  9. DESOGESTREL [Concomitant]
     Active Substance: DESOGESTREL
     Indication: HORMONE THERAPY
     Dosage: 0.15 MG, QD
     Route: 048
     Dates: start: 20180927
  10. PARACETAMOL [Concomitant]
     Active Substance: ACETAMINOPHEN
     Indication: ANAEMIA
     Dosage: 500 MG, SINGLE
     Route: 048
     Dates: start: 20191011, end: 20191011
  11. CLONAZEPAM. [Concomitant]
     Active Substance: CLONAZEPAM
     Indication: ADJUSTMENT DISORDER
     Dosage: 1 MG, QD
     Route: 048
     Dates: start: 20181203
  12. HYDROCORTISONE. [Concomitant]
     Active Substance: HYDROCORTISONE
     Indication: PREMEDICATION
     Dosage: 50 MG, SINGLE
     Route: 042
     Dates: start: 20191015, end: 20191015
  13. RAVULIZUMAB. [Suspect]
     Active Substance: RAVULIZUMAB
     Dosage: 3000 MG, UNK
     Route: 042
     Dates: start: 20191217
  14. DIPHENHYDRAMINE. [Concomitant]
     Active Substance: DIPHENHYDRAMINE
     Indication: RHINITIS ALLERGIC
     Dosage: 25 MG, QD
     Route: 048
     Dates: start: 20170725
  15. RIFAMPICIN [Concomitant]
     Active Substance: RIFAMPIN
     Indication: ABSCESS LIMB
     Dosage: 450 MG, QD
     Route: 048
     Dates: start: 20180716
  16. KETOCONAZOLE. [Concomitant]
     Active Substance: KETOCONAZOLE
     Indication: ONYCHOMYCOSIS
     Dosage: 2 %, QD
     Route: 061
     Dates: start: 20190916
  17. RAVULIZUMAB. [Suspect]
     Active Substance: RAVULIZUMAB
     Indication: PAROXYSMAL NOCTURNAL HAEMOGLOBINURIA
     Dosage: 2400 MG, UNK
     Route: 042
     Dates: start: 20170613
  18. METOPROLOL. [Concomitant]
     Active Substance: METOPROLOL
     Indication: VENTRICULAR EXTRASYSTOLES
     Dosage: 50 MG, QD
     Route: 048
     Dates: start: 20170821
  19. RAVULIZUMAB. [Suspect]
     Active Substance: RAVULIZUMAB
     Dosage: 3000 MG, UNK
     Route: 042
     Dates: start: 20190819
  20. LORAZEPAM. [Concomitant]
     Active Substance: LORAZEPAM
     Indication: VENTRICULAR EXTRASYSTOLES
     Dosage: 1 MG, QD
     Route: 048
     Dates: start: 20120430
  21. OMEPRAZOLE. [Concomitant]
     Active Substance: OMEPRAZOLE
     Indication: PROPHYLAXIS AGAINST GASTROINTESTINAL ULCER
     Dosage: 20 MG, PRN
     Route: 048
     Dates: start: 20171017
  22. ETHINYLESTRADIOL [Concomitant]
     Active Substance: ETHINYL ESTRADIOL
     Indication: HORMONE THERAPY
     Dosage: 0.02 MG, QD
     Route: 048
     Dates: start: 20180927
  23. COTRIMOXAZOLE [Concomitant]
     Active Substance: SULFAMETHOXAZOLE\TRIMETHOPRIM
     Indication: ANTIFUNGAL PROPHYLAXIS
     Dosage: 160 MG, TIW
     Route: 048
     Dates: start: 20190430
  24. LORAZEPAM. [Concomitant]
     Active Substance: LORAZEPAM
     Dosage: 1?2 MG, QD
     Route: 048
     Dates: start: 20190715
  25. FENTANYL. [Concomitant]
     Active Substance: FENTANYL
     Indication: ANAEMIA
     Dosage: 30 ?G, SINGLE
     Route: 042
     Dates: start: 20191012, end: 20191012
  26. KETOCONAZOLE. [Concomitant]
     Active Substance: KETOCONAZOLE
     Indication: ONYCHOMYCOSIS
     Dosage: 2 %, QD
     Route: 061
     Dates: start: 20190916
  27. AMIODARONE [Concomitant]
     Active Substance: AMIODARONE
     Indication: VENTRICULAR EXTRASYSTOLES
     Dosage: 200 MG, TIW
     Route: 048
     Dates: start: 20170922

REACTIONS (1)
  - Viral upper respiratory tract infection [Recovered/Resolved]

NARRATIVE: CASE EVENT DATE: 20190928
